FAERS Safety Report 13328707 (Version 1)
Quarter: 2017Q1

REPORT INFORMATION
  Report Type: Spontaneous
  Country: US (occurrence: US)
  Receive Date: 20170313
  Receipt Date: 20170313
  Transmission Date: 20170428
  Serious: No
  Sender: FDA-Public Use
  Company Number: US-BIOGEN-2017BI00368124

PATIENT
  Sex: Female

DRUGS (1)
  1. TYSABRI [Suspect]
     Active Substance: NATALIZUMAB
     Indication: MULTIPLE SCLEROSIS
     Route: 065
     Dates: start: 20161006

REACTIONS (11)
  - Disturbance in attention [Unknown]
  - Asthenia [Unknown]
  - Nausea [Unknown]
  - Diarrhoea [Unknown]
  - Emotional distress [Unknown]
  - Dizziness [Unknown]
  - Abasia [Unknown]
  - Amnesia [Unknown]
  - Drug dose omission [Unknown]
  - Vomiting [Unknown]
  - Vertigo [Unknown]
